FAERS Safety Report 5392159-7 (Version None)
Quarter: 2007Q3

REPORT INFORMATION
  Report Type: 
  Country: None (occurrence: None)
  Receive Date: 20070720
  Receipt Date: 20070713
  Transmission Date: 20080115
  Serious: Yes (Hospitalization)
  Sender: FDA-Public Use
  Company Number: JP-AVENTIS-200711775JP

PATIENT
  Age: 54 Year
  Sex: Female

DRUGS (12)
  1. AMARYL [Suspect]
     Indication: DIABETES MELLITUS
     Route: 048
     Dates: start: 20060101, end: 20070626
  2. BASEN [Concomitant]
     Indication: DIABETES MELLITUS
     Dates: start: 20060101, end: 20070626
  3. AMLODIPINE [Concomitant]
     Indication: HYPERTENSION
     Route: 048
     Dates: start: 20070601
  4. GLUCONSAN K [Concomitant]
  5. SINGULAIR [Concomitant]
     Route: 048
     Dates: start: 20070601
  6. THEOLONG [Concomitant]
     Route: 048
  7. NIPOLAZIN [Concomitant]
     Route: 048
  8. PLETAL [Concomitant]
     Indication: HYPERTENSION
     Route: 048
     Dates: start: 20070501
  9. MAGMITT [Concomitant]
  10. MUCOSTA [Concomitant]
     Route: 048
     Dates: start: 20070601
  11. PRAVASTATIN SODIUM [Concomitant]
     Route: 048
     Dates: start: 20070601
  12. MEPTIN MINITAB [Concomitant]
     Route: 048

REACTIONS (1)
  - THROMBOCYTOPENIA [None]
